FAERS Safety Report 5879231-X (Version None)
Quarter: 2008Q3

REPORT INFORMATION
  Report Type: 
  Country: None (occurrence: None)
  Receive Date: 20080912
  Receipt Date: 20080904
  Transmission Date: 20090109
  Serious: Yes (Other)
  Sender: FDA-Public Use
  Company Number: BR-BAYER-200818049LA

PATIENT
  Sex: Female

DRUGS (1)
  1. ANGELIQ [Suspect]
     Indication: HORMONE REPLACEMENT THERAPY
     Route: 048

REACTIONS (1)
  - BREAST MASS [None]
